FAERS Safety Report 6757902-0 (Version None)
Quarter: 2010Q2

REPORT INFORMATION
  Report Type: 
  Country: None (occurrence: None)
  Receive Date: 20100607
  Receipt Date: 20100603
  Transmission Date: 20101027
  Serious: Yes (Other)
  Sender: FDA-Public Use
  Company Number: BE-BAYER-201022405GPV

PATIENT
  Age: 38 Year
  Sex: Female

DRUGS (3)
  1. MOXIFLOXACIN HCL [Suspect]
     Indication: SINUSITIS
     Route: 048
  2. OROFAR [BENZOXONIUM CHLORIDE] [Concomitant]
     Indication: DRUG USE FOR UNKNOWN INDICATION
     Route: 048
  3. NASONEX [Concomitant]
     Indication: DRUG USE FOR UNKNOWN INDICATION
     Route: 045

REACTIONS (3)
  - AGEUSIA [None]
  - ANOSMIA [None]
  - DYSPEPSIA [None]
